FAERS Safety Report 9693508 (Version 2)
Quarter: 2013Q4

REPORT INFORMATION
  Report Type: Spontaneous
  Country: GB (occurrence: GB)
  Receive Date: 20131118
  Receipt Date: 20131212
  Transmission Date: 20140711
  Serious: Yes (Life-Threatening)
  Sender: FDA-Public Use
  Company Number: GB-BRISTOL-MYERS SQUIBB COMPANY-19792985

PATIENT
  Age: 69 Year
  Sex: Male
  Weight: 78 kg

DRUGS (7)
  1. BYETTA [Suspect]
     Indication: DIABETES MELLITUS
  2. ASPIRIN [Concomitant]
  3. BISOPROLOL [Concomitant]
  4. ATORVASTATIN [Concomitant]
  5. RAMIPRIL [Concomitant]
  6. NOVOMIX [Concomitant]
  7. METFORMIN [Concomitant]

REACTIONS (1)
  - Ventricular arrhythmia [Recovered/Resolved]
